FAERS Safety Report 10425501 (Version 1)
Quarter: 2014Q3

REPORT INFORMATION
  Report Type: Spontaneous
  Country: US (occurrence: None)
  Receive Date: 20140725
  Receipt Date: 20140725
  Transmission Date: 20150326
  Serious: No
  Sender: FDA-Public Use
  Company Number: AP356-00832-SPO-US

PATIENT
  Age: 73 Year
  Sex: Female
  Weight: 89.5 kg

DRUGS (4)
  1. GLIMEPRIDE (GLIMEPIRIDE) [Concomitant]
  2. VITAMIN B COMPLEX (VITAMIN-B-KOMPLEX STANDARD) [Concomitant]
  3. LEVOTHYROXINE [Concomitant]
     Active Substance: LEVOTHYROXINE
  4. BELVIQ [Suspect]
     Active Substance: LORCASERIN HYDROCHLORIDE
     Indication: WEIGHT DECREASED
     Route: 048
     Dates: start: 20140520

REACTIONS (1)
  - Fatigue [None]

NARRATIVE: CASE EVENT DATE: 20140524
